FAERS Safety Report 10186306 (Version 1)
Quarter: 2014Q2

REPORT INFORMATION
  Report Type: Spontaneous
  Country: US (occurrence: US)
  Receive Date: 20140521
  Receipt Date: 20140521
  Transmission Date: 20141212
  Serious: Yes (Hospitalization)
  Sender: FDA-Public Use
  Company Number: US-ROCHE-1400013

PATIENT
  Age: 58 Year
  Sex: Male

DRUGS (1)
  1. KLONOPIN [Suspect]
     Indication: SLEEP DISORDER
     Route: 048

REACTIONS (7)
  - Cholecystectomy [Recovered/Resolved]
  - Irritable bowel syndrome [Unknown]
  - Dyspepsia [Unknown]
  - Nervousness [Unknown]
  - Tachyphrenia [Unknown]
  - Feeling abnormal [Unknown]
  - Insomnia [Unknown]
